FAERS Safety Report 4319801-3 (Version None)
Quarter: 2004Q1

REPORT INFORMATION
  Report Type: 
  Country: None (occurrence: None)
  Receive Date: 20040316
  Receipt Date: 20040302
  Transmission Date: 20041129
  Serious: Yes (Life-Threatening, Other)
  Sender: FDA-Public Use
  Company Number: 2004S1000625

PATIENT
  Age: 72 Year
  Sex: Female
  Weight: 95.2554 kg

DRUGS (8)
  1. INDOMETHACIN 25MG CAP [Suspect]
     Indication: GOUT
     Dosage: 25MG QD, ORAL   (ONE DOSE)
     Route: 048
     Dates: start: 20040124
  2. ANASTROZOLE [Concomitant]
  3. LEVOTHYROXINE SODIUM [Concomitant]
  4. CAPTOPRIL [Concomitant]
  5. TRIAMTERENE AND HYDROCHLOROTHIAZIDE [Concomitant]
  6. ATENOLOL [Concomitant]
  7. OMEPRAZOLE [Concomitant]
  8. CLOPIDOGREL [Concomitant]

REACTIONS (2)
  - DEPRESSION [None]
  - SUICIDAL IDEATION [None]
